FAERS Safety Report 7578081-6 (Version None)
Quarter: 2011Q2

REPORT INFORMATION
  Report Type: 
  Country: None (occurrence: None)
  Receive Date: 20110628
  Receipt Date: 20101028
  Transmission Date: 20111010
  Serious: Yes (Other)
  Sender: FDA-Public Use
  Company Number: A0889544A

PATIENT
  Sex: Male

DRUGS (2)
  1. TAGAMET HB 200 [Suspect]
     Route: 048
  2. TAGAMET [Suspect]
     Route: 048

REACTIONS (5)
  - BARRETT'S OESOPHAGUS [None]
  - ABDOMINAL PAIN UPPER [None]
  - DRUG ADMINISTRATION ERROR [None]
  - PRODUCT QUALITY ISSUE [None]
  - HIATUS HERNIA [None]
